FAERS Safety Report 5067990-8 (Version None)
Quarter: 2006Q3

REPORT INFORMATION
  Report Type: 
  Country: None (occurrence: None)
  Receive Date: 20060717
  Receipt Date: 20051109
  Transmission Date: 20061208
  Serious: Yes (Hospitalization)
  Sender: FDA-Public Use
  Company Number: 2005-11-0622

PATIENT
  Age: 91 Year
  Sex: Male

DRUGS (2)
  1. INTEGRILIN [Suspect]
     Dosage: INTRAVENOUS
     Route: 042
  2. CLOPIDOGREL [Suspect]
     Dosage: ORAL
     Route: 048

REACTIONS (3)
  - HAEMORRHAGE [None]
  - PETECHIAE [None]
  - THROMBOCYTOPENIA [None]
